FAERS Safety Report 13913409 (Version 1)
Quarter: 2017Q3

REPORT INFORMATION
  Report Type: Spontaneous
  Country: US (occurrence: US)
  Receive Date: 20170828
  Receipt Date: 20170828
  Transmission Date: 20171127
  Serious: No
  Sender: FDA-Public Use
  Company Number: US-ROCHE-1132624

PATIENT
  Age: 15 Year
  Sex: Male
  Weight: 40 kg

DRUGS (6)
  1. NUTROPIN [Suspect]
     Active Substance: SOMATROPIN
     Indication: CHRONIC KIDNEY DISEASE
     Route: 058
  2. NUTROPIN [Suspect]
     Active Substance: SOMATROPIN
     Indication: AZOTAEMIA
  3. FERROUS SULFATE. [Concomitant]
     Active Substance: FERROUS SULFATE
  4. TUMS [Concomitant]
     Active Substance: CALCIUM CARBONATE
  5. ROCALTROL [Concomitant]
     Active Substance: CALCITRIOL
     Route: 065
  6. SODIUM BICARBONATE. [Concomitant]
     Active Substance: SODIUM BICARBONATE

REACTIONS (6)
  - Anaemia [Unknown]
  - Blood parathyroid hormone increased [Unknown]
  - Knee deformity [Unknown]
  - Bone deformity [Unknown]
  - Blood alkaline phosphatase increased [Unknown]
  - Fatigue [Unknown]

NARRATIVE: CASE EVENT DATE: 20000403
